FAERS Safety Report 15937295 (Version 1)
Quarter: 2019Q1

REPORT INFORMATION
  Report Type: Report from Study
  Country: DE (occurrence: DE)
  Receive Date: 20190208
  Receipt Date: 20190208
  Transmission Date: 20190417
  Serious: Yes (Death, Life-Threatening, Hospitalization, Other)
  Sender: FDA-Public Use
  Company Number: DE-ACCORD-105628

PATIENT
  Age: 56 Year
  Sex: Female
  Weight: 49 kg

DRUGS (25)
  1. ZOFRAN [Concomitant]
     Active Substance: ONDANSETRON HYDROCHLORIDE
     Indication: VOMITING
     Dosage: 1-0-0
     Route: 048
     Dates: start: 20150605
  2. NOVALGIN (METAMIZOLE SODIUM) [Concomitant]
     Active Substance: METAMIZOLE SODIUM
     Indication: TUMOUR PAIN
     Route: 048
     Dates: start: 20150602, end: 20150728
  3. DIPYRONE [Concomitant]
     Active Substance: DIPYRONE
     Route: 042
     Dates: start: 20160225
  4. DIPYRONE [Concomitant]
     Active Substance: DIPYRONE
     Route: 042
     Dates: start: 20150901, end: 20150902
  5. FLUOROURACIL. [Suspect]
     Active Substance: FLUOROURACIL
     Indication: COLORECTAL CANCER
     Dosage: OTHER DOSE AND DATES ARE GIVEN IN NARRATIVE
     Route: 041
     Dates: start: 20150603, end: 20150805
  6. DIPYRONE [Concomitant]
     Active Substance: DIPYRONE
     Route: 042
     Dates: start: 20160225, end: 20160226
  7. IRINOTECAN [Suspect]
     Active Substance: IRINOTECAN
     Indication: COLORECTAL CANCER
     Route: 042
     Dates: start: 20150603, end: 20150630
  8. HALOPERIDOL. [Concomitant]
     Active Substance: HALOPERIDOL
     Indication: VOMITING
     Dosage: 0.04 MG
     Route: 048
     Dates: start: 20150902, end: 201511
  9. DEXPANTHENOL. [Concomitant]
     Active Substance: DEXPANTHENOL
     Indication: MUCOSAL INFLAMMATION
  10. DIPYRONE [Concomitant]
     Active Substance: DIPYRONE
     Route: 042
     Dates: start: 20150831, end: 20150901
  11. DIPYRONE [Concomitant]
     Active Substance: DIPYRONE
     Route: 042
     Dates: start: 20150826, end: 20150831
  12. FOLINIC ACID [Suspect]
     Active Substance: LEUCOVORIN
     Indication: COLORECTAL CANCER
     Dosage: ALSO RECEIVED FROM 26-JAN-2016 TO 26-JAN-2016 AT DOSE OF 468 MG, FROM 03-JUN-2015 TO 12-FEB-2016
     Route: 042
     Dates: start: 20150903, end: 20151104
  13. KEPPRA [Concomitant]
     Active Substance: LEVETIRACETAM
     Route: 042
     Dates: start: 20160301
  14. MIRTAZAPINE. [Concomitant]
     Active Substance: MIRTAZAPINE
     Indication: ADJUSTMENT DISORDER WITH DEPRESSED MOOD
     Dosage: 0-0-1
     Route: 048
     Dates: start: 20150605, end: 20151208
  15. MIRTAZAPINE. [Concomitant]
     Active Substance: MIRTAZAPINE
     Indication: ADJUSTMENT DISORDER WITH DEPRESSED MOOD
     Dosage: 0-0-1
     Route: 048
  16. DIPYRONE [Concomitant]
     Active Substance: DIPYRONE
     Route: 048
     Dates: start: 20150902
  17. OXALIPLATIN. [Suspect]
     Active Substance: OXALIPLATIN
     Indication: COLORECTAL CANCER
     Dosage: OTHER DOSE AND DATES ARE GIVEN IN NARRATIVE
     Route: 042
     Dates: start: 20150603, end: 20150805
  18. BEPANTHENE [Concomitant]
     Active Substance: DEXPANTHENOL
     Indication: PROPHYLAXIS
     Dosage: 1-1-1
     Route: 048
  19. DIPYRONE [Concomitant]
     Active Substance: DIPYRONE
     Indication: COLORECTAL CANCER METASTATIC
     Dosage: OTHER DOSE AND DATES ARE GIVEN IN NARRATIVE
     Route: 042
     Dates: start: 20150810, end: 20150826
  20. NEXIUM [Concomitant]
     Active Substance: ESOMEPRAZOLE MAGNESIUM
     Indication: PROPHYLAXIS
     Route: 048
     Dates: start: 20150602, end: 20160224
  21. BEVACIZUMAB. [Suspect]
     Active Substance: BEVACIZUMAB
     Indication: COLORECTAL CANCER
     Dosage: DATE OF LAST DOSE PRIOR TO SAE: 30/JUN/2015 5 MG/KG
     Route: 042
     Dates: start: 20150603, end: 20151124
  22. ONDANSETRON [Concomitant]
     Active Substance: ONDANSETRON
     Indication: NAUSEA
     Route: 048
     Dates: start: 20150604
  23. PEGFILGRASTIM [Concomitant]
     Active Substance: PEGFILGRASTIM
     Indication: PROPHYLAXIS
     Dosage: SINCE 2ND CYCLE OF THERAPY.
     Route: 058
     Dates: start: 20150620, end: 20151023
  24. NEXIUM [Concomitant]
     Active Substance: ESOMEPRAZOLE MAGNESIUM
     Indication: PROPHYLAXIS
     Route: 048
     Dates: start: 20150602, end: 20160224
  25. EFFENTORA [Concomitant]
     Active Substance: FENTANYL CITRATE
     Indication: PAIN
     Route: 048

REACTIONS (9)
  - Optic nerve disorder [Unknown]
  - Neutropenia [Recovered/Resolved]
  - Headache [Not Recovered/Not Resolved]
  - Metastases to meninges [Recovering/Resolving]
  - Pulmonary embolism [Recovered/Resolved]
  - Venous thrombosis limb [Recovered/Resolved]
  - Overdose [Unknown]
  - Disturbance in attention [Fatal]
  - Pneumonia [Recovered/Resolved]

NARRATIVE: CASE EVENT DATE: 20150617
